FAERS Safety Report 6824602-8 (Version None)
Quarter: 2010Q3

REPORT INFORMATION
  Report Type: 
  Country: None (occurrence: None)
  Receive Date: 20100708
  Receipt Date: 20061128
  Transmission Date: 20110219
  Serious: No
  Sender: FDA-Public Use
  Company Number: US-PFIZER INC-2006136349

PATIENT
  Sex: Female
  Weight: 47.63 kg

DRUGS (3)
  1. CHANTIX [Suspect]
     Indication: SMOKING CESSATION THERAPY
     Route: 048
     Dates: start: 20061023
  2. VALIUM [Concomitant]
  3. ZOMIG [Concomitant]
     Indication: MIGRAINE

REACTIONS (9)
  - DIARRHOEA [None]
  - FLATULENCE [None]
  - HEADACHE [None]
  - HYPERSOMNIA [None]
  - JOB DISSATISFACTION [None]
  - MIGRAINE [None]
  - NAUSEA [None]
  - PAIN [None]
  - VOMITING [None]
